FAERS Safety Report 8848216 (Version 2)
Quarter: 2012Q4

REPORT INFORMATION
  Report Type: 
  Country: JP (occurrence: JP)
  Receive Date: 20121018
  Receipt Date: 20121101
  Transmission Date: 20130627
  Serious: Yes (Other)
  Sender: FDA-Public Use
  Company Number: JP-PFIZER INC-2012257009

PATIENT
  Age: 81 Year
  Sex: Male

DRUGS (1)
  1. LYRICA [Suspect]
     Indication: NEUROPATHIC PAIN
     Dosage: 200 mg, 1x/day
     Route: 048
     Dates: start: 201204

REACTIONS (1)
  - Parkinson^s disease [Unknown]
